FAERS Safety Report 8129417-9 (Version None)
Quarter: 2012Q1

REPORT INFORMATION
  Report Type: 
  Country: None (occurrence: None)
  Receive Date: 20120210
  Receipt Date: 20120202
  Transmission Date: 20120608
  Serious: No
  Sender: FDA-Public Use
  Company Number: US-B.I. PHARMACEUTICALS,INC./RIDGEFIELD-2011-BP-25747BP

PATIENT
  Sex: Male

DRUGS (20)
  1. VITAMIN D [Concomitant]
     Indication: ROUTINE HEALTH MAINTENANCE
     Dosage: 1000 MG
     Route: 048
     Dates: start: 20110101
  2. CINNAMON [Concomitant]
     Indication: SUPPLEMENTATION THERAPY
  3. NASONEX [Concomitant]
  4. LORAZEPAM [Concomitant]
     Indication: ANXIETY
  5. VITAMIN TAB [Concomitant]
     Indication: VITAMIN SUPPLEMENTATION
     Route: 048
  6. GREEN SOURCE MULTIVITAMIN [Concomitant]
     Indication: SUPPLEMENTATION THERAPY
  7. TRAZODONE HCL [Concomitant]
  8. PRADAXA [Suspect]
     Indication: ATRIAL FIBRILLATION
     Dosage: 300 MG
     Route: 048
     Dates: start: 20110901
  9. LOVASTATIN [Concomitant]
     Indication: BLOOD CHOLESTEROL INCREASED
     Dosage: 40 MG
     Route: 048
     Dates: start: 20080101
  10. MULTI-VITAMIN [Concomitant]
     Indication: ROUTINE HEALTH MAINTENANCE
     Dates: start: 20110101
  11. PROTEGRA [Concomitant]
     Indication: PROPHYLAXIS
     Dates: start: 19960101
  12. ATORVASTATIN CALCIUM [Concomitant]
     Indication: BLOOD CHOLESTEROL INCREASED
     Route: 048
  13. VITAMIN B COMPLEX CAP [Concomitant]
     Indication: ROUTINE HEALTH MAINTENANCE
  14. VITAMIN D [Concomitant]
     Indication: SUPPLEMENTATION THERAPY
  15. VIAGRA [Concomitant]
  16. TENORMIN [Concomitant]
     Indication: HYPERTENSION
     Dosage: 25 MG
     Route: 048
     Dates: start: 20060101
  17. CINNAMON [Concomitant]
     Indication: PROPHYLAXIS
     Dosage: 100 MG
     Dates: start: 20110101
  18. LIPITOR [Concomitant]
  19. VITAMIN B COMPLEX CAP [Concomitant]
     Indication: SUPPLEMENTATION THERAPY
  20. FISH OIL [Concomitant]
     Indication: SUPPLEMENTATION THERAPY

REACTIONS (8)
  - ASTHENIA [None]
  - HEADACHE [None]
  - RECTAL HAEMORRHAGE [None]
  - MELAENA [None]
  - DYSURIA [None]
  - FAECES HARD [None]
  - PAINFUL DEFAECATION [None]
  - HAEMORRHOID INFECTION [None]
